FAERS Safety Report 17623043 (Version 2)
Quarter: 2020Q2

REPORT INFORMATION
  Report Type: Spontaneous
  Country: US (occurrence: US)
  Receive Date: 20200403
  Receipt Date: 20200403
  Transmission Date: 20200713
  Serious: No
  Sender: FDA-Public Use
  Company Number: US-ALKERMES INC.-ALK-2020-001422

PATIENT
  Age: 27 Year
  Sex: Male

DRUGS (7)
  1. ARISTADA [Suspect]
     Active Substance: ARIPIPRAZOLE LAUROXIL
     Dosage: 662 MG, QMO
     Route: 030
     Dates: start: 201912, end: 201912
  2. ARISTADA [Suspect]
     Active Substance: ARIPIPRAZOLE LAUROXIL
     Dosage: 662 MG, QMO
     Route: 030
     Dates: start: 201911, end: 201911
  3. ARISTADA INITIO [Suspect]
     Active Substance: ARIPIPRAZOLE LAUROXIL
     Indication: BIPOLAR DISORDER
     Dosage: 675 MG, ONE TIME DOSE
     Route: 030
     Dates: start: 201911, end: 201911
  4. ADDERALL [Concomitant]
     Active Substance: AMPHETAMINE ASPARTATE\AMPHETAMINE SULFATE\DEXTROAMPHETAMINE SACCHARATE\DEXTROAMPHETAMINE SULFATE
     Indication: PRODUCT USED FOR UNKNOWN INDICATION
     Dosage: UNK
  5. WELLBUTRIN [Concomitant]
     Active Substance: BUPROPION HYDROCHLORIDE
     Indication: PRODUCT USED FOR UNKNOWN INDICATION
     Dosage: UNK
  6. TRINTELLIX [Concomitant]
     Active Substance: VORTIOXETINE HYDROBROMIDE
     Indication: PRODUCT USED FOR UNKNOWN INDICATION
     Dosage: UNK
  7. ARISTADA [Suspect]
     Active Substance: ARIPIPRAZOLE LAUROXIL
     Indication: BIPOLAR DISORDER
     Dosage: 441 MG, QMO
     Route: 030
     Dates: start: 202002, end: 202002

REACTIONS (7)
  - Off label use [Recovered/Resolved]
  - Depression [Not Recovered/Not Resolved]
  - Weight increased [Not Recovered/Not Resolved]
  - Somnolence [Not Recovered/Not Resolved]
  - Akathisia [Not Recovered/Not Resolved]
  - Apathy [Not Recovered/Not Resolved]
  - Emotional poverty [Not Recovered/Not Resolved]

NARRATIVE: CASE EVENT DATE: 201911
